FAERS Safety Report 5006744-5 (Version None)
Quarter: 2006Q2

REPORT INFORMATION
  Report Type: 
  Country: None (occurrence: None)
  Receive Date: 20060516
  Receipt Date: 20060503
  Transmission Date: 20061013
  Serious: Yes (Life-Threatening, Other)
  Sender: FDA-Public Use
  Company Number: 2006059737

PATIENT
  Age: 69 Year
  Sex: Female

DRUGS (1)
  1. CABERGOLINE [Suspect]
     Indication: RESTLESS LEGS SYNDROME
     Dosage: ORAL
     Route: 048
     Dates: start: 20010101

REACTIONS (4)
  - CARDIAC FAILURE [None]
  - COUGH [None]
  - PERICARDIAL EFFUSION [None]
  - PERICARDITIS [None]
